FAERS Safety Report 9717244 (Version 2)
Quarter: 2013Q4

REPORT INFORMATION
  Report Type: Spontaneous
  Country: FR (occurrence: FR)
  Receive Date: 20131127
  Receipt Date: 20131205
  Transmission Date: 20140711
  Serious: Yes (Hospitalization)
  Sender: FDA-Public Use
  Company Number: FR-PFIZER INC-2013335172

PATIENT
  Age: 36 Year
  Sex: Male

DRUGS (7)
  1. EFFEXOR LP [Suspect]
     Dosage: 150 MG, DAILY
     Route: 048
     Dates: start: 201309, end: 20131016
  2. EFFEXOR LP [Suspect]
     Dosage: 3 DF, DAILY
     Route: 048
     Dates: start: 20131021, end: 20131109
  3. LOXAPAC [Suspect]
     Dosage: 100 MG, 3X/DAY
     Route: 048
     Dates: end: 20131016
  4. LOXAPAC [Suspect]
     Dosage: 25 MG, 3X/DAY
     Route: 048
     Dates: start: 20131021, end: 20131023
  5. LOXAPAC [Suspect]
     Dosage: 50 MG, 3X/DAY
     Route: 048
     Dates: start: 20131024, end: 20131025
  6. SERESTA [Concomitant]
     Dosage: 50 MG, 3X/DAY
     Route: 048
  7. IMOVANE [Concomitant]
     Dosage: 7.5 MG, 1X/DAY
     Route: 048

REACTIONS (7)
  - Neuroleptic malignant syndrome [Recovered/Resolved]
  - Rhabdomyolysis [Recovered/Resolved]
  - Renal failure acute [Recovered/Resolved]
  - Hepatocellular injury [Recovered/Resolved]
  - Sepsis [Unknown]
  - Anxiety [Unknown]
  - Fall [Unknown]
